FAERS Safety Report 5760387-4 (Version None)
Quarter: 2008Q2

REPORT INFORMATION
  Report Type: 
  Country: None (occurrence: None)
  Receive Date: 20080602
  Receipt Date: 20080520
  Transmission Date: 20081010
  Serious: Yes (Hospitalization, Other)
  Sender: FDA-Public Use
  Company Number: PHFR2008GB01412

PATIENT
  Age: 18 Year
  Sex: Male

DRUGS (6)
  1. CLOZARIL [Suspect]
     Indication: SCHIZOPHRENIA
     Dosage: ORAL : 350MG MANE, 150 MG NOCTE, ORAL
     Route: 048
     Dates: start: 20071102, end: 20080514
  2. METFORMIN HCL [Suspect]
     Indication: WEIGHT CONTROL
     Dosage: 250MG/DAY : 250 MG BID
     Dates: end: 20080405
  3. METFORMIN HCL [Suspect]
     Indication: WEIGHT CONTROL
     Dosage: 250MG/DAY : 250 MG BID
     Dates: start: 20080401
  4. DOCUSATE (DOCUSATE) [Concomitant]
  5. SENNA (SENNA, SENNA ALEXANDRINA) [Concomitant]
  6. HYSOCINE (HYSOCINE) [Concomitant]

REACTIONS (10)
  - DEHYDRATION [None]
  - DRUG INTERACTION [None]
  - ENURESIS [None]
  - GASTROENTERITIS VIRAL [None]
  - NAUSEA [None]
  - NEUTROPENIA [None]
  - PNEUMONIA [None]
  - SALIVARY HYPERSECRETION [None]
  - VOMITING [None]
  - WEIGHT DECREASED [None]
